FAERS Safety Report 14495376 (Version 1)
Quarter: 2018Q1

REPORT INFORMATION
  Report Type: Spontaneous
  Country: US (occurrence: US)
  Receive Date: 20180206
  Receipt Date: 20180206
  Transmission Date: 20180509
  Serious: No
  Sender: FDA-Public Use
  Company Number: US-SMITH AND NEPHEW, INC-2017SMT00231

PATIENT
  Age: 80 Year
  Sex: Female
  Weight: 74.83 kg

DRUGS (8)
  1. BENICAR [Concomitant]
     Active Substance: OLMESARTAN MEDOXOMIL
     Indication: HYPERTENSION
  2. UNSPECIFIED VITAMINS [Concomitant]
     Active Substance: VITAMINS
  3. VITAMIN B [Concomitant]
     Active Substance: VITAMIN B
  4. ACTONEL [Concomitant]
     Active Substance: RISEDRONATE SODIUM
     Indication: OSTEOPOROSIS
  5. VITAMIN D [Concomitant]
     Active Substance: CHOLECALCIFEROL
  6. VITAMIN E [Concomitant]
     Active Substance: .ALPHA.-TOCOPHEROL
  7. REGRANEX [Suspect]
     Active Substance: BECAPLERMIN
     Indication: WOUND
     Dosage: UNK, EVERY OTHER DAY
     Route: 061
     Dates: start: 201704
  8. SIMVASTATIN. [Concomitant]
     Active Substance: SIMVASTATIN
     Indication: BLOOD CHOLESTEROL

REACTIONS (3)
  - Inappropriate schedule of drug administration [Not Recovered/Not Resolved]
  - Application site dryness [Unknown]
  - Application site discomfort [Unknown]

NARRATIVE: CASE EVENT DATE: 201704
